FAERS Safety Report 22339691 (Version 1)
Quarter: 2023Q2

REPORT INFORMATION
  Report Type: Spontaneous
  Country: US (occurrence: None)
  Receive Date: 20230517
  Receipt Date: 20230517
  Transmission Date: 20230721
  Serious: Yes (Hospitalization, Other)
  Sender: FDA-Public Use
  Company Number: None

PATIENT
  Sex: Male

DRUGS (1)
  1. BENZEDREX NASAL DECONGESTANT [Suspect]
     Active Substance: PROPYLHEXEDRINE

REACTIONS (3)
  - Pica [None]
  - Paranoia [None]
  - Delusion [None]

NARRATIVE: CASE EVENT DATE: 20230510
